FAERS Safety Report 8426593-5 (Version None)
Quarter: 2012Q2

REPORT INFORMATION
  Report Type: 
  Country: None (occurrence: None)
  Receive Date: 20120611
  Receipt Date: 20120601
  Transmission Date: 20120825
  Serious: Yes (Death, Life-Threatening, Other)
  Sender: FDA-Public Use
  Company Number: US-SANOFI-AVENTIS-2012SA040608

PATIENT
  Sex: Female

DRUGS (21)
  1. ZAFIRLUKAST [Concomitant]
  2. DOCUSATE SODIUM [Concomitant]
  3. AMIODARONE HYDROCHLORIDE [Interacting]
     Indication: ILL-DEFINED DISORDER
     Route: 065
  4. VISTARIL [Interacting]
     Indication: ILL-DEFINED DISORDER
     Route: 030
  5. LEVOTHYROXINE SODIUM [Concomitant]
  6. AZITHROMYCIN [Interacting]
     Indication: ILL-DEFINED DISORDER
     Route: 065
  7. DEXAMETHASONE ACETATE [Concomitant]
  8. ZOLPIDEM TARTRATE [Concomitant]
  9. NYSTATIN [Concomitant]
  10. ZOLOFT [Interacting]
     Indication: ILL-DEFINED DISORDER
     Route: 065
  11. WARFARIN [Concomitant]
  12. FUROSEMIDE [Concomitant]
  13. LORAZEPAM [Concomitant]
  14. GLYBURIDE [Suspect]
     Indication: ILL-DEFINED DISORDER
     Route: 065
  15. SERETIDE MITE [Concomitant]
  16. TUSSIONEX /OLD FORM/ ^PENNWALT^ [Concomitant]
  17. ACETYLSALICYLIC ACID SRT [Concomitant]
  18. DIPHENHYDRAMINE HYDROCHLORIDE [Interacting]
     Indication: ILL-DEFINED DISORDER
     Route: 065
  19. METOLAZONE [Concomitant]
  20. SPIRONOLACTONE [Concomitant]
  21. LOSARTAN POTASSIUM [Concomitant]

REACTIONS (3)
  - ISCHAEMIC CARDIOMYOPATHY [None]
  - DRUG INTERACTION [None]
  - HYPERSENSITIVITY [None]
